FAERS Safety Report 4867243-4 (Version None)
Quarter: 2005Q4

REPORT INFORMATION
  Report Type: 
  Country: None (occurrence: None)
  Receive Date: 20051227
  Receipt Date: 20051227
  Transmission Date: 20060501
  Serious: Yes (Hospitalization)
  Sender: FDA-Public Use
  Company Number: None

PATIENT
  Age: 49 Year
  Sex: Male
  Weight: 126.1 kg

DRUGS (11)
  1. DIVALPROEX NA 500MG TABLET [Suspect]
  2. INFLUENZA [Concomitant]
  3. IBUPROFEN [Concomitant]
  4. LORAZEPAM [Concomitant]
  5. QUETIAPINE FUMARATE [Concomitant]
  6. SIMVASTATIN [Concomitant]
  7. GABAPENTIN [Concomitant]
  8. ASPIRIN [Concomitant]
  9. ALLOPURINOL [Concomitant]
  10. VENLAFAXINE HCL [Concomitant]
  11. ZIPRASIDONE [Concomitant]

REACTIONS (1)
  - AMMONIA INCREASED [None]
